FAERS Safety Report 4649369-3 (Version None)
Quarter: 2005Q2

REPORT INFORMATION
  Report Type: 
  Country: None (occurrence: None)
  Receive Date: 20050502
  Receipt Date: 20050420
  Transmission Date: 20051028
  Serious: Yes (Hospitalization)
  Sender: FDA-Public Use
  Company Number: JP-JNJFOC-20050306978

PATIENT
  Sex: Female
  Weight: 54.5 kg

DRUGS (27)
  1. REMICADE [Suspect]
     Dosage: FIFTH INFUSION
     Route: 042
  2. REMICADE [Suspect]
     Dosage: THIS WAS THE FOURTH ADMINISTRATION
     Route: 042
  3. REMICADE [Suspect]
     Route: 042
  4. REMICADE [Suspect]
     Route: 042
  5. REMICADE [Suspect]
     Indication: RHEUMATOID ARTHRITIS
     Route: 042
  6. RHEUMATREX [Suspect]
     Indication: RHEUMATOID ARTHRITIS
     Dosage: PREVIOUSLY REPORTED AS STARTING 08-APR-1997
     Route: 049
  7. RIMATIL [Suspect]
     Indication: RHEUMATOID ARTHRITIS
     Route: 049
  8. PREDNISOLONE [Concomitant]
     Route: 049
  9. PREDNISOLONE [Concomitant]
     Indication: RHEUMATOID ARTHRITIS
     Route: 049
  10. CLINORIL [Concomitant]
     Indication: RHEUMATOID ARTHRITIS
     Route: 049
  11. YAKUBAN [Concomitant]
     Indication: RHEUMATOID ARTHRITIS
     Route: 049
  12. SELTOUCH [Concomitant]
     Indication: RHEUMATOID ARTHRITIS
  13. MINOCYCLINE HCL [Concomitant]
     Route: 049
  14. LUVOX [Concomitant]
     Route: 049
  15. FOSAMAX [Concomitant]
     Route: 049
  16. MEDICON [Concomitant]
     Route: 049
  17. MUCOSLOVAN [Concomitant]
     Route: 049
  18. DASEN [Concomitant]
     Route: 049
  19. PL [Concomitant]
     Route: 049
  20. PYDOXAL [Concomitant]
     Route: 049
  21. MAGNESIUM OXIDE [Concomitant]
     Route: 049
  22. VOLTAREN [Concomitant]
     Route: 062
  23. CHONDRON [Concomitant]
     Route: 047
  24. ISCOTIN [Concomitant]
     Route: 049
  25. PURSENNID [Concomitant]
     Route: 049
  26. FOLIAMIN [Concomitant]
     Route: 049
  27. NEUROTROPIN [Concomitant]
     Dosage: 16 UNITS DAILY
     Route: 049

REACTIONS (1)
  - HERPES ZOSTER [None]
